FAERS Safety Report 15733101 (Version 2)
Quarter: 2019Q1

REPORT INFORMATION
  Report Type: Spontaneous
  Country: PL (occurrence: PL)
  Receive Date: 20181218
  Receipt Date: 20190114
  Transmission Date: 20190417
  Serious: Yes (Other)
  Sender: FDA-Public Use
  Company Number: PL-JNJFOC-20181211320

PATIENT
  Age: 56 Year
  Sex: Female

DRUGS (2)
  1. PSEUDOEPHEDRINE HYDROCHLORIDE. [Suspect]
     Active Substance: PSEUDOEPHEDRINE HYDROCHLORIDE
     Indication: NASAL CONGESTION
     Dosage: 10 MG, QID
     Route: 065
  2. PSEUDOEPHEDRINE HYDROCHLORIDE. [Suspect]
     Active Substance: PSEUDOEPHEDRINE HYDROCHLORIDE
     Route: 065

REACTIONS (4)
  - Colitis ischaemic [Recovered/Resolved]
  - Diarrhoea haemorrhagic [Recovered/Resolved]
  - Vomiting [Recovered/Resolved]
  - Abdominal pain lower [Recovered/Resolved]
